FAERS Safety Report 9286517 (Version 4)
Quarter: 2014Q3

REPORT INFORMATION
  Report Type: Spontaneous
  Country: US (occurrence: US)
  Receive Date: 20130513
  Receipt Date: 20140808
  Transmission Date: 20150326
  Serious: Yes (Hospitalization, Other)
  Sender: FDA-Public Use
  Company Number: US-009507513-1305USA005493

PATIENT
  Sex: Female
  Weight: 59.86 kg

DRUGS (1)
  1. NUVARING [Suspect]
     Active Substance: ETHINYL ESTRADIOL\ETONOGESTREL
     Indication: CONTRACEPTION
     Dosage: UNK
     Route: 067
     Dates: start: 20120224, end: 20120520

REACTIONS (12)
  - Pain [Unknown]
  - Vena cava filter insertion [Unknown]
  - Post procedural complication [Recovered/Resolved]
  - Deep vein thrombosis [Recovered/Resolved]
  - Dehydration [Recovered/Resolved]
  - Neuropathy peripheral [Unknown]
  - Ligament sprain [Unknown]
  - Anaemia [Unknown]
  - Catheter site haemorrhage [Unknown]
  - Maternal exposure before pregnancy [Unknown]
  - Pulmonary embolism [Unknown]
  - Leukocytosis [Unknown]

NARRATIVE: CASE EVENT DATE: 201205
